FAERS Safety Report 7114695-5 (Version None)
Quarter: 2010Q4

REPORT INFORMATION
  Report Type: 
  Country: None (occurrence: None)
  Receive Date: 20101122
  Receipt Date: 20101112
  Transmission Date: 20110411
  Serious: Yes (Hospitalization)
  Sender: FDA-Public Use
  Company Number: US-BIOGENIDEC-2010BI039823

PATIENT
  Age: 41 Year
  Sex: Female
  Weight: 144 kg

DRUGS (2)
  1. AVONEX [Suspect]
     Indication: MULTIPLE SCLEROSIS
     Route: 030
     Dates: start: 19990101
  2. AVONEX [Suspect]
     Route: 030

REACTIONS (3)
  - ANAEMIA [None]
  - COAGULATION FACTOR VIII LEVEL ABNORMAL [None]
  - MENORRHAGIA [None]
